FAERS Safety Report 10213285 (Version 1)
Quarter: 2014Q2

REPORT INFORMATION
  Report Type: Spontaneous
  Country: US (occurrence: None)
  Receive Date: 20140529
  Receipt Date: 20140529
  Transmission Date: 20141212
  Serious: Yes (Death)
  Sender: FDA-Public Use
  Company Number: UNT-2014-001215

PATIENT
  Age: 61 Year
  Sex: Male

DRUGS (1)
  1. TYVASO [Suspect]
     Indication: PULMONARY HYPERTENSION
     Route: 055
     Dates: start: 201211, end: 201402

REACTIONS (1)
  - Death [None]
